FAERS Safety Report 10366112 (Version 1)
Quarter: 2014Q1

REPORT INFORMATION
  Report Type: Spontaneous
  Country: US (occurrence: None)
  Receive Date: 20140306
  Receipt Date: 20140306
  Transmission Date: 20141002
  Serious: Yes (Other)
  Sender: FDA-Public Use
  Company Number: 163-21880-13030880

PATIENT
  Age: 82 Year
  Sex: Female

DRUGS (8)
  1. CALCITONIN (CALCITONIN) (UNKNOWN) [Concomitant]
  2. CALCIUM VITAMIN D (CALCIUM D3 ^STADA^) (UNKNOWN) [Concomitant]
  3. REVLIMID [Suspect]
     Indication: PLASMA CELL MYELOMA
     Dosage: 5 MG, 21 IN 28 D, PO
     Route: 048
     Dates: start: 201301
  4. DEXAMETHASONE (DEXAMETHASONE) (UNKNOWN) [Concomitant]
  5. ZOLEDRONIC ACID (ZOLEDRONIC ACID) (UNKNOWN) [Concomitant]
  6. ASA (ACETYLSALICYLIC ACID) (UNKNOWN) [Concomitant]
  7. LISINOPRIL (LISINOPRIL) (UNKNOWN) (LISINOPRIL) [Concomitant]
  8. SIMVASTATIN (SIMVASTATIN) (UNKNOWN) [Concomitant]

REACTIONS (1)
  - Pancytopenia [None]
